FAERS Safety Report 7025696-X (Version None)
Quarter: 2010Q4

REPORT INFORMATION
  Report Type: 
  Country: None (occurrence: None)
  Receive Date: 20101004
  Receipt Date: 20100924
  Transmission Date: 20110411
  Serious: Yes (Hospitalization)
  Sender: FDA-Public Use
  Company Number: US-BIOGENIDEC-2010BI027584

PATIENT
  Age: 49 Year
  Sex: Male
  Weight: 86 kg

DRUGS (15)
  1. TYSABRI [Suspect]
     Indication: MULTIPLE SCLEROSIS
     Route: 042
     Dates: start: 20090417
  2. CIALIS [Concomitant]
  3. KLONOPIN [Concomitant]
  4. VENLAFAXINE [Concomitant]
  5. NEURONTIN [Concomitant]
     Indication: PAIN
  6. NEURONTIN [Concomitant]
     Indication: NEURALGIA
  7. NEURONTIN [Concomitant]
     Indication: MUSCLE SPASMS
  8. NEURONTIN [Concomitant]
  9. NEURONTIN [Concomitant]
  10. NEURONTIN [Concomitant]
  11. BACLOFEN [Concomitant]
     Indication: PAIN
     Route: 048
  12. BACLOFEN [Concomitant]
     Indication: NEURALGIA
     Route: 048
  13. BACLOFEN [Concomitant]
     Indication: MUSCLE SPASMS
     Route: 048
  14. MULTI-VITAMINS [Concomitant]
     Indication: PRODUCT USED FOR UNKNOWN INDICATION
  15. MOTRIN [Concomitant]
     Indication: PRODUCT USED FOR UNKNOWN INDICATION

REACTIONS (13)
  - BURNS SECOND DEGREE [None]
  - CERVICAL MYELOPATHY [None]
  - CONFUSIONAL STATE [None]
  - DYSPHEMIA [None]
  - FATIGUE [None]
  - MENTAL STATUS CHANGES [None]
  - MULTIPLE SCLEROSIS RELAPSE [None]
  - MUSCLE SPASMS [None]
  - NEURALGIA [None]
  - PAIN [None]
  - PERICARDITIS [None]
  - STRESS [None]
  - VIITH NERVE PARALYSIS [None]
